APPROVED DRUG PRODUCT: AMLODIPINE AND OLMESARTAN MEDOXOMIL
Active Ingredient: AMLODIPINE BESYLATE; OLMESARTAN MEDOXOMIL
Strength: EQ 5MG BASE;40MG
Dosage Form/Route: TABLET;ORAL
Application: A209600 | Product #003
Applicant: ACCORD HEALTHCARE INC USA
Approved: Aug 30, 2018 | RLD: No | RS: No | Type: DISCN